FAERS Safety Report 25271560 (Version 2)
Quarter: 2025Q3

REPORT INFORMATION
  Report Type: Report from Study
  Country: US (occurrence: US)
  Receive Date: 20250506
  Receipt Date: 20250829
  Transmission Date: 20251020
  Serious: Yes (Death, Other)
  Sender: SUNOVION
  Company Number: US-SUMITOMO PHARMA SWITZERLAND GMBH-2025SPA004358

PATIENT
  Age: 74 Year
  Sex: Male

DRUGS (13)
  1. ORGOVYX [Suspect]
     Active Substance: RELUGOLIX
     Indication: Prostate cancer
     Route: 048
  2. ORGOVYX [Suspect]
     Active Substance: RELUGOLIX
     Dosage: 120 MG, QD
     Route: 048
  3. ELIQUIS [Concomitant]
     Active Substance: APIXABAN
  4. MULTAQ [Concomitant]
     Active Substance: DRONEDARONE
  5. GLIPIZIDE [Concomitant]
     Active Substance: GLIPIZIDE
  6. METOPROLOL [Concomitant]
     Active Substance: METOPROLOL
  7. LEVOTHYROXINE [Concomitant]
     Active Substance: LEVOTHYROXINE
  8. METFORMIN [Concomitant]
     Active Substance: METFORMIN HYDROCHLORIDE
  9. NATEGLINIDE [Concomitant]
     Active Substance: NATEGLINIDE
  10. ROSUVASTATIN [Concomitant]
     Active Substance: ROSUVASTATIN
  11. PIOGLITAZONE [Concomitant]
     Active Substance: PIOGLITAZONE
  12. OXYBUTYNIN [Concomitant]
     Active Substance: OXYBUTYNIN
  13. TYLENOL [Concomitant]
     Active Substance: ACETAMINOPHEN

REACTIONS (3)
  - Death [Fatal]
  - Somnolence [Unknown]
  - Fatigue [Unknown]
